FAERS Safety Report 12660214 (Version 3)
Quarter: 2016Q4

REPORT INFORMATION
  Report Type: Spontaneous
  Country: SA (occurrence: SA)
  Receive Date: 20160817
  Receipt Date: 20161006
  Transmission Date: 20170207
  Serious: Yes (Life-Threatening, Hospitalization, Other)
  Sender: FDA-Public Use
  Company Number: SA-ALEXION PHARMACEUTICALS INC.-A201606002

PATIENT
  Sex: Female

DRUGS (1)
  1. STRENSIQ [Suspect]
     Active Substance: ASFOTASE ALFA
     Indication: HYPOPHOSPHATASIA
     Dosage: 8 MG, TIW (2 MG PER KG)
     Route: 058

REACTIONS (4)
  - Carbon dioxide increased [Unknown]
  - Pneumonia [Unknown]
  - Pyrexia [Unknown]
  - Respiratory distress [Unknown]
